FAERS Safety Report 4562319-3 (Version None)
Quarter: 2005Q1

REPORT INFORMATION
  Report Type: 
  Country: None (occurrence: None)
  Receive Date: 20050121
  Receipt Date: 20050103
  Transmission Date: 20050727
  Serious: Yes (Hospitalization)
  Sender: FDA-Public Use
  Company Number: 2004BI001195

PATIENT
  Age: 46 Year
  Sex: Female

DRUGS (4)
  1. AVONEX [Suspect]
     Indication: MULTIPLE SCLEROSIS
     Dosage: 30 UG; QW; IM
     Route: 030
     Dates: start: 19961201
  2. CHINESE HERBALS [Concomitant]
  3. BACLOFEN [Concomitant]
  4. DOXEPIN HCL [Concomitant]

REACTIONS (3)
  - ANAPHYLACTIC REACTION [None]
  - BREAST CANCER FEMALE [None]
  - HYPERSENSITIVITY [None]
